FAERS Safety Report 15752670 (Version 6)
Quarter: 2019Q1

REPORT INFORMATION
  Report Type: Report from Study
  Country: US (occurrence: US)
  Receive Date: 20181221
  Receipt Date: 20190301
  Transmission Date: 20190417
  Serious: Yes (Death)
  Sender: FDA-Public Use
  Company Number: US-ACTELION-A-NJ2018-181876

PATIENT
  Age: 78 Year
  Sex: Male
  Weight: 92.97 kg

DRUGS (4)
  1. VELETRI [Suspect]
     Active Substance: EPOPROSTENOL
     Indication: PULMONARY ARTERIAL HYPERTENSION
     Dosage: 9 NG/KG, PER MIN
     Route: 042
  2. VELETRI [Suspect]
     Active Substance: EPOPROSTENOL
     Dosage: 8 NG/KG, PER MIN
     Route: 042
  3. VELETRI [Suspect]
     Active Substance: EPOPROSTENOL
     Dosage: 11 NG/KG, PER MIN
     Route: 042
  4. TYVASO [Suspect]
     Active Substance: TREPROSTINIL
     Indication: PULMONARY ARTERIAL HYPERTENSION
     Dosage: 3-9 BREATHS
     Route: 055
     Dates: start: 20171113

REACTIONS (20)
  - Blood glucose abnormal [Unknown]
  - Vomiting [Unknown]
  - Death [Fatal]
  - Underdose [Unknown]
  - Somnolence [Unknown]
  - Flushing [Unknown]
  - Malaise [Unknown]
  - Listless [Unknown]
  - Sinus congestion [Unknown]
  - Nausea [Unknown]
  - Diarrhoea [Unknown]
  - Poor quality sleep [Unknown]
  - Chills [Recovered/Resolved]
  - Hypophagia [Unknown]
  - Headache [Unknown]
  - Nasal congestion [Unknown]
  - Decreased appetite [Unknown]
  - Blood pressure increased [Unknown]
  - Erythema [Unknown]
  - Device leakage [Unknown]

NARRATIVE: CASE EVENT DATE: 20190214
